FAERS Safety Report 17189428 (Version 1)
Quarter: 2019Q4

REPORT INFORMATION
  Report Type: Spontaneous
  Country: SE (occurrence: SE)
  Receive Date: 20191223
  Receipt Date: 20191223
  Transmission Date: 20200122
  Serious: Yes (Hospitalization)
  Sender: FDA-Public Use
  Company Number: SE-SA-2019SA350639

PATIENT
  Age: 26 Year
  Sex: Female

DRUGS (3)
  1. STILNOCT [Suspect]
     Active Substance: ZOLPIDEM TARTRATE
     Indication: INSOMNIA
     Dosage: UNK (5-6)
     Route: 048
     Dates: start: 20180831, end: 20180831
  2. VALERIANA OFFICINALIS EXTRACT [Suspect]
     Active Substance: VALERIAN
     Indication: INSOMNIA
     Dosage: UNK (1-2)
     Route: 048
     Dates: start: 20180831, end: 20180831
  3. PROPAVAN [Suspect]
     Active Substance: PROPIOMAZINE
     Indication: INSOMNIA
     Dosage: 8 DF, UNK
     Route: 048
     Dates: start: 20180831, end: 20180831

REACTIONS (3)
  - Intentional overdose [Unknown]
  - Tachycardia [Unknown]
  - Fatigue [Unknown]

NARRATIVE: CASE EVENT DATE: 20180831
